FAERS Safety Report 5888857-9 (Version None)
Quarter: 2008Q3

REPORT INFORMATION
  Report Type: 
  Country: None (occurrence: None)
  Receive Date: 20080919
  Receipt Date: 20080910
  Transmission Date: 20090109
  Serious: Yes (Other)
  Sender: FDA-Public Use
  Company Number: PHHY2008CN20726

PATIENT
  Age: 19 Year
  Sex: Male

DRUGS (1)
  1. TRILEPTAL [Suspect]
     Indication: EPILEPSY
     Dosage: 450 MG, BID
     Route: 048
     Dates: start: 20080724

REACTIONS (2)
  - DEPRESSION [None]
  - HOMICIDE [None]
